FAERS Safety Report 11003080 (Version 1)
Quarter: 2015Q2

REPORT INFORMATION
  Report Type: Spontaneous
  Country: IN (occurrence: IN)
  Receive Date: 20150409
  Receipt Date: 20150409
  Transmission Date: 20150821
  Serious: Yes (Other)
  Sender: FDA-Public Use
  Company Number: ALCN2015IN002238

PATIENT
  Age: 10 Year
  Sex: Female

DRUGS (1)
  1. MOXIFLOXACIN [Suspect]
     Active Substance: MOXIFLOXACIN
     Indication: CONJUNCTIVITIS BACTERIAL
     Dosage: 1 GTT, QID
     Route: 047

REACTIONS (9)
  - Toxicity to various agents [Recovered/Resolved]
  - Eye pain [Recovered/Resolved]
  - Photophobia [Recovered/Resolved]
  - Inappropriate schedule of drug administration [Recovered/Resolved]
  - Ocular hyperaemia [Recovered/Resolved]
  - Visual acuity reduced [Recovered/Resolved]
  - Corneal oedema [Recovered/Resolved]
  - Lacrimation increased [Recovered/Resolved]
  - Punctate keratitis [Recovered/Resolved]
